FAERS Safety Report 6124276-8 (Version None)
Quarter: 2009Q1

REPORT INFORMATION
  Report Type: 
  Country: None (occurrence: None)
  Receive Date: 20090319
  Receipt Date: 20090309
  Transmission Date: 20090719
  Serious: Yes (Hospitalization)
  Sender: FDA-Public Use
  Company Number: PHHY2009JP06205

PATIENT
  Age: 27 Year
  Sex: Male
  Weight: 78 kg

DRUGS (3)
  1. NEORAL [Suspect]
     Indication: RENAL TRANSPLANT
     Dosage: 100-250 MG/DAY
     Route: 048
     Dates: start: 20000401
  2. CELLCEPT [Suspect]
     Indication: RENAL TRANSPLANT
     Dosage: 1.5-2.0 G/DAY
     Route: 048
     Dates: start: 20000401, end: 20080501
  3. PREDONINE [Suspect]
     Indication: RENAL TRANSPLANT
     Dosage: 7.5-60 MG/DAY
     Route: 048
     Dates: start: 19991001

REACTIONS (10)
  - ADENOVIRAL HAEMORRHAGIC CYSTITIS [None]
  - BLOOD CREATININE INCREASED [None]
  - DEPRESSED MOOD [None]
  - DYSURIA [None]
  - GENERAL PHYSICAL HEALTH DETERIORATION [None]
  - HAEMORRHAGE URINARY TRACT [None]
  - POLLAKIURIA [None]
  - RED BLOOD CELLS URINE POSITIVE [None]
  - VIRUS SEROLOGY TEST POSITIVE [None]
  - WHITE BLOOD CELLS URINE POSITIVE [None]
